FAERS Safety Report 9129889 (Version 10)
Quarter: 2013Q4

REPORT INFORMATION
  Report Type: Report from Study
  Country: CA (occurrence: CA)
  Receive Date: 20130228
  Receipt Date: 20131216
  Transmission Date: 20140711
  Serious: Yes (Hospitalization, Other)
  Sender: FDA-Public Use
  Company Number: CA-ROCHE-1193846

PATIENT
  Age: 26 Year
  Sex: Female
  Weight: 86.4 kg

DRUGS (12)
  1. RITUXAN [Suspect]
     Indication: SYSTEMIC LUPUS ERYTHEMATOSUS
     Route: 042
     Dates: start: 20130204
  2. PREDNISOLON [Suspect]
     Indication: PRODUCT USED FOR UNKNOWN INDICATION
     Route: 065
     Dates: end: 2013
  3. LABETALOL [Suspect]
     Indication: HYPERTENSION
     Route: 065
     Dates: end: 2013
  4. HYDROXYCHLOROQUINE [Concomitant]
  5. VITAMIN B12 [Concomitant]
  6. ADALAT XL [Concomitant]
  7. ONDANSETRON [Concomitant]
     Route: 065
  8. TRIAMCINOLONE [Concomitant]
     Route: 065
  9. IRBESARTAN [Concomitant]
  10. METHYLPREDNISOLONE [Concomitant]
     Route: 042
     Dates: start: 20130219
  11. CIPRALEX [Concomitant]
     Route: 065
  12. HYDROCHLOROTHIAZIDE [Concomitant]
     Route: 065

REACTIONS (22)
  - Joint swelling [Recovered/Resolved]
  - Effusion [Unknown]
  - Arthralgia [Not Recovered/Not Resolved]
  - Nausea [Recovering/Resolving]
  - Vomiting [Recovering/Resolving]
  - Abdominal pain [Recovering/Resolving]
  - Escherichia infection [Recovering/Resolving]
  - Heart rate increased [Not Recovered/Not Resolved]
  - Anxiety [Unknown]
  - Rash [Recovered/Resolved]
  - Blood pressure increased [Recovered/Resolved]
  - Pain in extremity [Recovered/Resolved]
  - Headache [Not Recovered/Not Resolved]
  - Pyrexia [Recovered/Resolved]
  - Fatigue [Not Recovered/Not Resolved]
  - Pain of skin [Not Recovered/Not Resolved]
  - Rash [Recovered/Resolved]
  - Therapeutic response decreased [Unknown]
  - Weight decreased [Not Recovered/Not Resolved]
  - Influenza [Recovering/Resolving]
  - Arthralgia [Not Recovered/Not Resolved]
  - Off label use [Unknown]
